FAERS Safety Report 10973588 (Version 3)
Quarter: 2015Q3

REPORT INFORMATION
  Report Type: Spontaneous
  Country: JP (occurrence: JP)
  Receive Date: 20150401
  Receipt Date: 20150724
  Transmission Date: 20151125
  Serious: No
  Sender: FDA-Public Use
  Company Number: JP-BEH-2015049926

PATIENT
  Sex: Female

DRUGS (2)
  1. INTRAVENOUS IMMUNOGLOBULIN [Suspect]
     Active Substance: HUMAN IMMUNOGLOBULIN G
     Indication: ABORTION SPONTANEOUS
     Dosage: 20G DAILY IN THE COURSE OF 5 DAYS (TOTAL 100G)
     Route: 042
  2. INTRAVENOUS IMMUNOGLOBULIN [Suspect]
     Active Substance: HUMAN IMMUNOGLOBULIN G
     Indication: PROPHYLAXIS
     Dosage: 20G DAILY IN THE COURSE OF 5 DAYS (TOTAL 100G)
     Route: 042

REACTIONS (1)
  - Exposure during pregnancy [Recovered/Resolved]
